FAERS Safety Report 16689299 (Version 1)
Quarter: 2019Q3

REPORT INFORMATION
  Report Type: Spontaneous
  Country: US (occurrence: US)
  Receive Date: 20190809
  Receipt Date: 20190809
  Transmission Date: 20191004
  Serious: No
  Sender: FDA-Public Use
  Company Number: US-TEVA-2019-US-1088041

PATIENT
  Age: 61 Year
  Sex: Male
  Weight: 87 kg

DRUGS (2)
  1. CLOZAPINE. [Suspect]
     Active Substance: CLOZAPINE
     Indication: TARDIVE DYSKINESIA
     Dosage: DAILY
     Dates: start: 2019, end: 20190801
  2. BENADRYL [Concomitant]
     Active Substance: DIPHENHYDRAMINE HYDROCHLORIDE

REACTIONS (5)
  - Product use in unapproved indication [Unknown]
  - C-reactive protein increased [Not Recovered/Not Resolved]
  - Product prescribing error [Unknown]
  - White blood cell count increased [Not Recovered/Not Resolved]
  - Orthostatic hypotension [Unknown]

NARRATIVE: CASE EVENT DATE: 2019
